FAERS Safety Report 17797993 (Version 1)
Quarter: 2020Q2

REPORT INFORMATION
  Report Type: Report from Study
  Country: GB (occurrence: GB)
  Receive Date: 20200518
  Receipt Date: 20200518
  Transmission Date: 20200714
  Serious: Yes (Other)
  Sender: FDA-Public Use
  Company Number: PHHY2018GB189699

PATIENT
  Sex: Female

DRUGS (1)
  1. ERELZI [Suspect]
     Active Substance: ETANERCEPT-SZZS
     Indication: RHEUMATOID ARTHRITIS
     Dosage: 50 MG, QW (PRE FILLED PEN)
     Route: 058
     Dates: start: 20181024

REACTIONS (4)
  - Ill-defined disorder [Unknown]
  - Arthralgia [Unknown]
  - Product dose omission [Unknown]
  - Malaise [Unknown]
